FAERS Safety Report 25049713 (Version 1)
Quarter: 2025Q1

REPORT INFORMATION
  Report Type: Spontaneous
  Country: IT (occurrence: IT)
  Receive Date: 20250307
  Receipt Date: 20250307
  Transmission Date: 20250409
  Serious: Yes (Other)
  Sender: AUROBINDO
  Company Number: IT-MINISAL02-1025870

PATIENT
  Age: 47 Year
  Sex: Female

DRUGS (2)
  1. CARBOPLATIN [Suspect]
     Active Substance: CARBOPLATIN
     Indication: Ovarian cancer
     Route: 042
     Dates: start: 20241029
  2. PACLITAXEL [Suspect]
     Active Substance: PACLITAXEL
     Indication: Ovarian cancer
     Route: 042
     Dates: start: 20241029, end: 20241029

REACTIONS (3)
  - Transfusion-associated dyspnoea [Recovering/Resolving]
  - Abdominal pain upper [Recovered/Resolved]
  - Nausea [Recovered/Resolved]

NARRATIVE: CASE EVENT DATE: 20241029
